FAERS Safety Report 9970009 (Version 3)
Quarter: 2014Q2

REPORT INFORMATION
  Report Type: Spontaneous
  Country: JP (occurrence: JP)
  Receive Date: 20140306
  Receipt Date: 20140404
  Transmission Date: 20141212
  Serious: Yes (Life-Threatening, Other)
  Sender: FDA-Public Use
  Company Number: JP-ELI_LILLY_AND_COMPANY-JP201403000628

PATIENT
  Age: 17 Year
  Sex: Male

DRUGS (2)
  1. ZYPREXA INTRA-MUSCULAR INJECTION [Suspect]
     Indication: AGITATION
     Dosage: 10 MG, UNK
     Route: 030
     Dates: start: 20140213, end: 20140213
  2. ROHYPNOL [Suspect]
     Indication: AGITATION
     Dosage: 2 MG, UNK
     Route: 042
     Dates: start: 20140213, end: 20140213

REACTIONS (3)
  - Hypopnoea [Recovered/Resolved]
  - Sedation [Recovered/Resolved]
  - Off label use [Recovered/Resolved]
